FAERS Safety Report 8732523 (Version 2)
Quarter: 2015Q2

REPORT INFORMATION
  Report Type: Report from Study
  Country: US (occurrence: US)
  Receive Date: 20120820
  Receipt Date: 20150408
  Transmission Date: 20150821
  Serious: Yes (Death, Other)
  Sender: FDA-Public Use
  Company Number: US-ROCHE-1100472

PATIENT
  Age: 73 Year
  Sex: Female

DRUGS (17)
  1. ACTIVASE [Suspect]
     Active Substance: ALTEPLASE
     Route: 065
  2. DOPAMINE [Concomitant]
     Active Substance: DOPAMINE\DOPAMINE HYDROCHLORIDE
     Route: 048
  3. COLACE [Concomitant]
     Active Substance: DOCUSATE SODIUM
     Route: 048
  4. TYLENOL [Concomitant]
     Active Substance: ACETAMINOPHEN
     Route: 048
  5. ATROPINE [Concomitant]
     Active Substance: ATROPINE
     Route: 042
  6. ACTIVASE [Suspect]
     Active Substance: ALTEPLASE
     Indication: ACUTE MYOCARDIAL INFARCTION
     Route: 065
  7. ACTIVASE [Suspect]
     Active Substance: ALTEPLASE
     Route: 065
  8. MILK OF MAGNESIA [Concomitant]
     Active Substance: MAGNESIUM HYDROXIDE
     Dosage: 30 UNITS
     Route: 048
  9. EPINEPHRINE. [Concomitant]
     Active Substance: EPINEPHRINE
     Route: 042
  10. PARACETAMOL [Concomitant]
     Active Substance: ACETAMINOPHEN
  11. VALIUM [Concomitant]
     Active Substance: DIAZEPAM
     Route: 048
  12. DOPAMINE [Concomitant]
     Active Substance: DOPAMINE\DOPAMINE HYDROCHLORIDE
     Route: 048
  13. HALCION [Concomitant]
     Active Substance: TRIAZOLAM
     Route: 048
  14. RIOPAN (MAGALDRATE) [Concomitant]
     Dosage: 30 UNITS
     Route: 048
  15. COMPAZINE [Concomitant]
     Active Substance: PROCHLORPERAZINE MALEATE
     Route: 042
  16. COMPAZINE [Concomitant]
     Active Substance: PROCHLORPERAZINE MALEATE
     Route: 065
  17. MORPHINE SULFATE. [Concomitant]
     Active Substance: MORPHINE SULFATE
     Route: 042

REACTIONS (4)
  - Cardiogenic shock [Fatal]
  - Cardiac failure congestive [Unknown]
  - Bradycardia [Unknown]
  - Dyspnoea [Unknown]

NARRATIVE: CASE EVENT DATE: 19931013
